FAERS Safety Report 5078968-2 (Version None)
Quarter: 2006Q3

REPORT INFORMATION
  Report Type: 
  Country: None (occurrence: None)
  Receive Date: 20060809
  Receipt Date: 20060809
  Transmission Date: 20061208
  Serious: Yes (Hospitalization)
  Sender: FDA-Public Use
  Company Number: None

PATIENT
  Sex: Male
  Weight: 82.2 kg

DRUGS (4)
  1. CYCLOPHOSPHAMIDE [Suspect]
     Dosage: 1860 MG
  2. FLUDARABINE PHOSPHATE [Suspect]
     Dosage: 279 MG
  3. METHOTREXATE [Suspect]
     Dosage: 27.9 MG
  4. TACROLIMUS [Suspect]
     Dosage: 145.5 MG

REACTIONS (24)
  - ACUTE RESPIRATORY DISTRESS SYNDROME [None]
  - BACTERIAL INFECTION [None]
  - BLOOD CREATININE INCREASED [None]
  - BLOOD CULTURE POSITIVE [None]
  - BLOOD UREA INCREASED [None]
  - BRAIN NATRIURETIC PEPTIDE INCREASED [None]
  - CARDIAC FAILURE CONGESTIVE [None]
  - DYSPNOEA [None]
  - EJECTION FRACTION DECREASED [None]
  - ERYTHEMA [None]
  - MALAISE [None]
  - MULTIPLE MYELOMA [None]
  - OEDEMA PERIPHERAL [None]
  - PAIN [None]
  - PLEURAL EFFUSION [None]
  - PULMONARY HYPERTENSION [None]
  - PULMONARY OEDEMA [None]
  - RENAL IMPAIRMENT [None]
  - STAPHYLOCOCCAL INFECTION [None]
  - STEM CELL TRANSPLANT [None]
  - SUBCLAVIAN VEIN THROMBOSIS [None]
  - SWELLING [None]
  - THROMBOSIS [None]
  - TROPONIN I INCREASED [None]
